FAERS Safety Report 20991713 (Version 1)
Quarter: 2022Q2

REPORT INFORMATION
  Report Type: Spontaneous
  Country: US (occurrence: None)
  Receive Date: 20220621
  Receipt Date: 20220621
  Transmission Date: 20220720
  Serious: Yes (Other)
  Sender: FDA-Public Use
  Company Number: None

PATIENT
  Sex: Male

DRUGS (18)
  1. XELJANZ XR [Suspect]
     Active Substance: TOFACITINIB CITRATE
     Indication: Psoriatic arthropathy
     Dosage: TAKE 1 TABLET BY MOUTH DAILY
     Route: 048
     Dates: start: 20210310
  2. ALLOPURINOL [Concomitant]
  3. ACETAMINOPHEN\CODEINE PHOSPHATE [Concomitant]
     Active Substance: ACETAMINOPHEN\CODEINE PHOSPHATE
  4. CEFADROXIL [Concomitant]
  5. CLOBETASOL [Concomitant]
     Active Substance: CLOBETASOL
  6. DICLOFENAC [Concomitant]
     Active Substance: DICLOFENAC
  7. DOCQLACE [Concomitant]
     Active Substance: DOCUSATE SODIUM
  8. FLUOCINONIDE [Concomitant]
  9. GLIMEPIRIDE [Concomitant]
     Active Substance: GLIMEPIRIDE
  10. GLIPIZIDE [Concomitant]
     Active Substance: GLIPIZIDE
  11. HYDROCODONE/ACETAMINOPHEN [Concomitant]
  12. HYDROXYZ HCL [Concomitant]
  13. LISINOPRIL [Concomitant]
     Active Substance: LISINOPRIL
  14. MELOXICAM [Concomitant]
  15. NYSTATIN CRE [Concomitant]
  16. TACLONEX [Concomitant]
  17. TRIAMCINOLON [Concomitant]
  18. VICTOZA [Concomitant]

REACTIONS (2)
  - Cataract operation [None]
  - Intentional dose omission [None]
